FAERS Safety Report 15300003 (Version 1)
Quarter: 2018Q3

REPORT INFORMATION
  Report Type: Spontaneous
  Country: US (occurrence: US)
  Receive Date: 20180808
  Receipt Date: 20180808
  Transmission Date: 20181010
  Serious: Yes (Disabling)
  Sender: FDA-Public Use
  Company Number: None

PATIENT
  Age: 68 Year
  Sex: Female
  Weight: 96.3 kg

DRUGS (9)
  1. LOSARTAN. [Concomitant]
     Active Substance: LOSARTAN
  2. SIMVASTATIN. [Concomitant]
     Active Substance: SIMVASTATIN
  3. TRAMADOL. [Concomitant]
     Active Substance: TRAMADOL
  4. OTC MULTIVITAMIN [Concomitant]
  5. CHLORTHALIDONE. [Concomitant]
     Active Substance: CHLORTHALIDONE
  6. D?3 [Concomitant]
     Active Substance: CHOLECALCIFEROL
  7. LOW DOSE ASPIRIN [Concomitant]
     Active Substance: ASPIRIN
  8. RECLAST [Suspect]
     Active Substance: ZOLEDRONIC ACID
     Indication: OSTEOPOROSIS
     Dosage: ?          QUANTITY:1 IV;OTHER FREQUENCY:YEARLY;?
     Route: 042
     Dates: start: 20180611, end: 20180611
  9. MELOXICAM. [Concomitant]
     Active Substance: MELOXICAM

REACTIONS (10)
  - Pain [None]
  - Nausea [None]
  - Muscle spasms [None]
  - Arthralgia [None]
  - Insurance issue [None]
  - Drug hypersensitivity [None]
  - Haematochezia [None]
  - Dysstasia [None]
  - Gastric disorder [None]
  - Tooth disorder [None]

NARRATIVE: CASE EVENT DATE: 20180611
